FAERS Safety Report 13022814 (Version 1)
Quarter: 2016Q4

REPORT INFORMATION
  Report Type: Spontaneous
  Country: RU (occurrence: RU)
  Receive Date: 20161213
  Receipt Date: 20161213
  Transmission Date: 20170207
  Serious: Yes (Other)
  Sender: FDA-Public Use
  Company Number: RU-BAYER-2016-231444

PATIENT
  Age: 40 Year
  Sex: Female

DRUGS (1)
  1. YARINA [Suspect]
     Active Substance: DROSPIRENONE\ETHINYL ESTRADIOL
     Dosage: UNK
     Route: 048

REACTIONS (3)
  - Malaise [None]
  - Spinal cord infection [None]
  - Body temperature increased [None]
